FAERS Safety Report 15267912 (Version 1)
Quarter: 2018Q3

REPORT INFORMATION
  Report Type: Spontaneous
  Country: US (occurrence: US)
  Receive Date: 20180725
  Receipt Date: 20180725
  Transmission Date: 20181010
  Serious: Yes (Other)
  Sender: FDA-Public Use
  Company Number: None

PATIENT
  Age: 14 Year
  Sex: Male
  Weight: 67.1 kg

DRUGS (4)
  1. CLONIDINE 0.2 MG ORAL TABLET [Concomitant]
  2. RISPERIDONE. [Suspect]
     Active Substance: RISPERIDONE
     Indication: AUTISM SPECTRUM DISORDER
     Route: 048
  3. RISPERIDONE. [Suspect]
     Active Substance: RISPERIDONE
     Indication: AUTISM SPECTRUM DISORDER
     Route: 048
  4. METHYLPHENIDATE (DAYTRANA) 20 MG/9HR TRANSDERMAL PATCH [Concomitant]

REACTIONS (8)
  - Aggression [None]
  - Product taste abnormal [None]
  - Drug intolerance [None]
  - Manufacturing product shipping issue [None]
  - Treatment noncompliance [None]
  - Retching [None]
  - Vomiting [None]
  - Product substitution issue [None]

NARRATIVE: CASE EVENT DATE: 20180702
